FAERS Safety Report 4516860-X (Version None)
Quarter: 2004Q4

REPORT INFORMATION
  Report Type: 
  Country: None (occurrence: None)
  Receive Date: 20041202
  Receipt Date: 20041122
  Transmission Date: 20050328
  Serious: Yes (Other)
  Sender: FDA-Public Use
  Company Number: NL-GLAXOSMITHKLINE-B0358673A

PATIENT
  Age: 40 Year
  Sex: Female

DRUGS (9)
  1. AUGMENTIN '125' [Suspect]
     Dosage: 1TAB THREE TIMES PER DAY
     Dates: start: 20041103, end: 20041110
  2. FLUTICASONE PROPIONATE [Suspect]
     Dosage: 250MCG TWICE PER DAY
  3. LAMOTRIGINE [Suspect]
  4. TRIMETHOPRIM [Concomitant]
  5. OXAZEPAM [Concomitant]
     Dosage: 10MG TWICE PER DAY
  6. YASMIN [Concomitant]
     Dates: start: 20040908
  7. ZYPREXA [Concomitant]
     Dosage: 5MG TWICE PER DAY
  8. ZOLOFT [Concomitant]
     Dosage: 100MG TWICE PER DAY
  9. CAMCOLIT [Concomitant]
     Dosage: 1200MG PER DAY

REACTIONS (2)
  - DEPRESSION [None]
  - MENTAL DISORDER [None]
